FAERS Safety Report 11172503 (Version 1)
Quarter: 2015Q2

REPORT INFORMATION
  Report Type: Spontaneous
  Country: US (occurrence: US)
  Receive Date: 20150608
  Receipt Date: 20150608
  Transmission Date: 20150821
  Serious: No
  Sender: FDA-Public Use
  Company Number: US-AMGEN-USASP2014084219

PATIENT
  Age: 85 Year
  Sex: Male

DRUGS (1)
  1. PROCRIT [Suspect]
     Active Substance: ERYTHROPOIETIN
     Indication: NEPHROGENIC ANAEMIA
     Dosage: UNK AS NEEDED
     Route: 065
     Dates: start: 2012

REACTIONS (5)
  - Gait disturbance [Unknown]
  - Drug tolerance [Unknown]
  - Haemoglobin decreased [Not Recovered/Not Resolved]
  - Activities of daily living impaired [Unknown]
  - Dyspnoea [Unknown]
